FAERS Safety Report 10007997 (Version 3)
Quarter: 2014Q1

REPORT INFORMATION
  Report Type: Spontaneous
  Country: US (occurrence: US)
  Receive Date: 20140313
  Receipt Date: 20140318
  Transmission Date: 20141002
  Serious: Yes (Hospitalization)
  Sender: FDA-Public Use
  Company Number: US-INCYTE CORPORATION-2013IN003056

PATIENT
  Age: 62 Year
  Sex: Female
  Weight: 99.77 kg

DRUGS (20)
  1. JAKAFI [Suspect]
     Indication: MYELOFIBROSIS
     Dosage: 10 MG IN AM/ 5 MG IN PM QD
     Dates: start: 20131209
  2. JAKAFI [Suspect]
     Dosage: 10 MG, BID
     Route: 048
     Dates: start: 20131210
  3. NEXIUM                             /01479302/ [Concomitant]
  4. ESTRADIOL [Concomitant]
  5. ZANAFLEX [Concomitant]
  6. BUMETANIDE [Concomitant]
  7. SPIRONOLACTONE [Concomitant]
  8. LEVOTHYROXINE [Concomitant]
  9. ATENOLOL [Concomitant]
  10. POTASSIUM [Concomitant]
  11. DOXEPIN [Concomitant]
  12. PRAZOSIN [Concomitant]
  13. RISPERIDONE [Concomitant]
  14. DULCOLAX                           /00064401/ [Concomitant]
  15. ACETAMINOPHEN [Concomitant]
  16. PHILLIPS COLON HEALTH [Concomitant]
  17. VITAMIN D3 [Concomitant]
     Dosage: 1000 UT, UNK
  18. TERCONAZOLE [Concomitant]
  19. RIZATRIPTAN [Concomitant]
  20. ALPRAZOLAM [Concomitant]

REACTIONS (5)
  - Hospitalisation [Unknown]
  - Fatigue [Unknown]
  - Flatulence [Unknown]
  - Abdominal distension [Not Recovered/Not Resolved]
  - Weight increased [Unknown]
